FAERS Safety Report 16738599 (Version 1)
Quarter: 2019Q3

REPORT INFORMATION
  Report Type: Spontaneous
  Country: NL (occurrence: NL)
  Receive Date: 20190826
  Receipt Date: 20190826
  Transmission Date: 20191005
  Serious: Yes (Other)
  Sender: FDA-Public Use
  Company Number: NL-CELLTRION INC.-2019NL023550

PATIENT

DRUGS (6)
  1. MYCOPHENOLATE MOFETIL. [Suspect]
     Active Substance: MYCOPHENOLATE MOFETIL
     Indication: IMMUNOSUPPRESSION
     Dosage: UNK
     Route: 065
  2. METHOTREXATE. [Suspect]
     Active Substance: METHOTREXATE
     Indication: IMMUNOSUPPRESSION
     Dosage: UNK
     Route: 065
  3. METHOTREXATE. [Suspect]
     Active Substance: METHOTREXATE
     Indication: SYSTEMIC SCLERODERMA
  4. MYCOPHENOLATE MOFETIL. [Suspect]
     Active Substance: MYCOPHENOLATE MOFETIL
     Indication: SYSTEMIC SCLERODERMA
  5. CYCLOPHOSPHAMIDE. [Suspect]
     Active Substance: CYCLOPHOSPHAMIDE
     Indication: IMMUNOSUPPRESSION
     Dosage: UNK
     Route: 042
  6. RITUXIMAB (UNKNOWN) [Suspect]
     Active Substance: RITUXIMAB
     Indication: SYSTEMIC SCLERODERMA
     Dosage: UNK
     Route: 065

REACTIONS (5)
  - Respiratory tract infection viral [Unknown]
  - Infected skin ulcer [Unknown]
  - Osteomyelitis [Unknown]
  - Product use in unapproved indication [Unknown]
  - Drug ineffective [Unknown]
